FAERS Safety Report 6294199-2 (Version None)
Quarter: 2009Q3

REPORT INFORMATION
  Report Type: 
  Country: None (occurrence: None)
  Receive Date: 20090803
  Receipt Date: 20090223
  Transmission Date: 20100115
  Serious: No
  Sender: FDA-Public Use
  Company Number: A0769933A

PATIENT
  Sex: Male

DRUGS (1)
  1. NICOTINE [Suspect]

REACTIONS (3)
  - CHEILITIS [None]
  - GLOSSODYNIA [None]
  - ORAL PAIN [None]
